FAERS Safety Report 25468857 (Version 1)
Quarter: 2025Q2

REPORT INFORMATION
  Report Type: Spontaneous
  Country: US (occurrence: None)
  Receive Date: 20250623
  Receipt Date: 20250623
  Transmission Date: 20250716
  Serious: No
  Sender: FDA-CTU
  Company Number: None

PATIENT
  Age: 68 Year
  Sex: Female

DRUGS (1)
  1. DUPIXENT [Suspect]
     Active Substance: DUPILUMAB
     Indication: Eczema
     Dosage: FREQUENCY : EVERY OTHER WEEK;?
     Route: 058
     Dates: start: 202505, end: 20250620

REACTIONS (7)
  - Eczema [None]
  - Rash [None]
  - Eczema [None]
  - Abdominal pain upper [None]
  - Irritable bowel syndrome [None]
  - Eye disorder [None]
  - Pain [None]

NARRATIVE: CASE EVENT DATE: 20250501
